FAERS Safety Report 13676306 (Version 2)
Quarter: 2020Q1

REPORT INFORMATION
  Report Type: Spontaneous
  Country: US (occurrence: US)
  Receive Date: 20170622
  Receipt Date: 20200320
  Transmission Date: 20200409
  Serious: Yes (Other)
  Sender: FDA-Public Use
  Company Number: US-BRISTOL-MYERS SQUIBB COMPANY-BMS-2017-053520

PATIENT
  Sex: Female

DRUGS (2)
  1. YERVOY [Suspect]
     Active Substance: IPILIMUMAB
     Indication: SMALL CELL LUNG CANCER METASTATIC
     Dosage: 1 MG/KG, UNK
     Route: 065
  2. OPDIVO [Suspect]
     Active Substance: NIVOLUMAB
     Indication: SMALL CELL LUNG CANCER METASTATIC
     Dosage: 3 MG/KG, UNK
     Route: 065

REACTIONS (4)
  - Cutaneous T-cell lymphoma [Recovered/Resolved]
  - Squamous cell carcinoma [Recovered/Resolved]
  - Pseudolymphoma [Recovered/Resolved]
  - Intentional product use issue [Unknown]
